FAERS Safety Report 26158714 (Version 1)
Quarter: 2025Q4

REPORT INFORMATION
  Report Type: Report from Study
  Country: KW (occurrence: KW)
  Receive Date: 20251215
  Receipt Date: 20251215
  Transmission Date: 20260118
  Serious: Yes (Hospitalization, Other)
  Sender: MERCK KGAA
  Company Number: KW-Merck Healthcare KGaA-2025063260

PATIENT
  Age: 54 Year
  Sex: Female

DRUGS (1)
  1. REBIF [Suspect]
     Active Substance: INTERFERON BETA-1A
     Indication: Multiple sclerosis
     Dates: start: 2011

REACTIONS (3)
  - Immunodeficiency [Unknown]
  - Influenza [Recovered/Resolved]
  - Vitamin D decreased [Unknown]
